FAERS Safety Report 8465247-6 (Version None)
Quarter: 2012Q2

REPORT INFORMATION
  Report Type: 
  Country: None (occurrence: None)
  Receive Date: 20120626
  Receipt Date: 20120621
  Transmission Date: 20120825
  Serious: Yes (Other)
  Sender: FDA-Public Use
  Company Number: PHHY2012AU053506

PATIENT
  Age: 64 Year
  Sex: Female

DRUGS (4)
  1. PAMIDRONATE DISODIUM [Suspect]
     Indication: MULTIPLE MYELOMA
     Dosage: 90 MG, UNK
     Route: 042
  2. DEXAMETHASONE [Concomitant]
     Indication: MULTIPLE MYELOMA
  3. LENALIDOMIDE [Concomitant]
     Indication: MULTIPLE MYELOMA
     Dosage: 15 MG, DAILY
  4. ZOLEDRONIC ACID [Suspect]
     Indication: MULTIPLE MYELOMA
     Dosage: 4 MG,
     Route: 042

REACTIONS (6)
  - TOOTH LOSS [None]
  - OROANTRAL FISTULA [None]
  - EXPOSED BONE IN JAW [None]
  - OSTEONECROSIS OF JAW [None]
  - PAIN IN JAW [None]
  - FISTULA DISCHARGE [None]
